FAERS Safety Report 7447826-8 (Version None)
Quarter: 2011Q2

REPORT INFORMATION
  Report Type: 
  Country: None (occurrence: None)
  Receive Date: 20110429
  Receipt Date: 20110421
  Transmission Date: 20111010
  Serious: Yes (Hospitalization)
  Sender: FDA-Public Use
  Company Number: US-B.I. PHARMACEUTICALS,INC./RIDGEFIELD-2011-BP-00843BP

PATIENT
  Sex: Female

DRUGS (9)
  1. VITAMIN C [Concomitant]
  2. VITAMIN E [Concomitant]
  3. ALOE VERA [Concomitant]
  4. CALCIUM [Concomitant]
  5. VITAMIN B COMPLEX CAP [Concomitant]
  6. SYNTHROID [Concomitant]
  7. PRADAXA [Suspect]
     Indication: ATRIAL FIBRILLATION
     Route: 048
     Dates: start: 20110113
  8. AMIODARONE HCL [Concomitant]
  9. FULL SPECTRUM DIETARY ENZYMES [Concomitant]

REACTIONS (2)
  - HEART RATE INCREASED [None]
  - HEART RATE IRREGULAR [None]
